FAERS Safety Report 25254697 (Version 1)
Quarter: 2025Q2

REPORT INFORMATION
  Report Type: Spontaneous
  Country: DE (occurrence: DE)
  Receive Date: 20250430
  Receipt Date: 20250430
  Transmission Date: 20250716
  Serious: No
  Sender: Unknown Manufacturer
  Company Number: DE-MIRUM PHARMACEUTICALS INTERNATIONAL B.V.-DE-MIR-25-00221

PATIENT

DRUGS (1)
  1. LIVMARLI [Suspect]
     Active Substance: MARALIXIBAT CHLORIDE
     Indication: Alagille syndrome
     Dosage: 0.2 MILLILITER, QD
     Route: 065
     Dates: start: 202411

REACTIONS (2)
  - Blood cholinesterase decreased [Not Recovered/Not Resolved]
  - Aspartate aminotransferase increased [Not Recovered/Not Resolved]

NARRATIVE: CASE EVENT DATE: 20250401
